FAERS Safety Report 21974414 (Version 1)
Quarter: 2023Q1

REPORT INFORMATION
  Report Type: Spontaneous
  Country: FR (occurrence: FR)
  Receive Date: 20230209
  Receipt Date: 20230209
  Transmission Date: 20230418
  Serious: Yes (Hospitalization)
  Sender: FDA-Public Use
  Company Number: None

PATIENT
  Age: 90 Year
  Sex: Female

DRUGS (1)
  1. PEMBROLIZUMAB [Suspect]
     Active Substance: PEMBROLIZUMAB
     Dosage: UNK
     Dates: start: 202205, end: 202210

REACTIONS (3)
  - Aplasia pure red cell [Not Recovered/Not Resolved]
  - Lung disorder [Not Recovered/Not Resolved]
  - Evans syndrome [Recovered/Resolved]

NARRATIVE: CASE EVENT DATE: 20220901
